FAERS Safety Report 9636425 (Version 1)
Quarter: 2013Q4

REPORT INFORMATION
  Report Type: Spontaneous
  Country: US (occurrence: US)
  Receive Date: 20131021
  Receipt Date: 20131021
  Transmission Date: 20140711
  Serious: Yes (Hospitalization, Other)
  Sender: FDA-Public Use
  Company Number: US-GILEAD-2013-0085682

PATIENT
  Age: 47 Year
  Sex: Female

DRUGS (3)
  1. LETAIRIS [Suspect]
     Indication: PRODUCT USED FOR UNKNOWN INDICATION
     Dosage: 5 MG, UNK
     Route: 048
     Dates: start: 20130926
  2. XARELTO [Concomitant]
  3. PROTONIX [Concomitant]

REACTIONS (2)
  - Pulmonary thrombosis [Recovered/Resolved]
  - Dyspnoea [Recovered/Resolved]
